FAERS Safety Report 5553333-X (Version None)
Quarter: 2007Q4

REPORT INFORMATION
  Report Type: 
  Country: None (occurrence: None)
  Receive Date: 20071207
  Receipt Date: 20071207
  Transmission Date: 20080405
  Serious: Yes (Disabling, Other)
  Sender: FDA-Public Use
  Company Number: None

PATIENT
  Age: 39 Year
  Sex: Female
  Weight: 74.8435 kg

DRUGS (1)
  1. MIRENA [Suspect]
     Indication: CONTRACEPTION
     Dosage: INTRA-UTERI
     Route: 015
     Dates: start: 20050420, end: 20071205

REACTIONS (19)
  - ABDOMINAL DISCOMFORT [None]
  - ALOPECIA [None]
  - ANHEDONIA [None]
  - ARTHRALGIA [None]
  - BACK PAIN [None]
  - BREAST PAIN [None]
  - CERVIX DISORDER [None]
  - DEPRESSION [None]
  - DIZZINESS [None]
  - HEAD INJURY [None]
  - INFECTION [None]
  - IUCD COMPLICATION [None]
  - IUD MIGRATION [None]
  - LOSS OF LIBIDO [None]
  - MENORRHAGIA [None]
  - MUSCLE SPASMS [None]
  - PAIN [None]
  - SYNCOPE [None]
  - WEIGHT INCREASED [None]
